FAERS Safety Report 12759171 (Version 2)
Quarter: 2016Q3

REPORT INFORMATION
  Report Type: Spontaneous
  Country: TR (occurrence: TR)
  Receive Date: 20160919
  Receipt Date: 20160929
  Transmission Date: 20161109
  Serious: Yes (Other)
  Sender: FDA-Public Use
  Company Number: TR-PFIZER INC-2016432011

PATIENT
  Sex: Male
  Weight: 3.25 kg

DRUGS (5)
  1. MAGNESIUM SULPHATE /07507001/ [Suspect]
     Active Substance: MAGNESIUM SULFATE
     Dosage: UNK
  2. DEXTROSE. [Concomitant]
     Active Substance: DEXTROSE
     Indication: RESPIRATORY DISTRESS
     Dosage: 10 %, UNK (60 ML/KG/DAY)
     Route: 042
  3. DOBCARD [Suspect]
     Active Substance: DOBUTAMINE HYDROCHLORIDE
     Dosage: UNK
  4. AMPICILLIN [Concomitant]
     Active Substance: AMPICILLIN
     Indication: TACHYPNOEA
     Dosage: 50 MG/KG, 2X/DAY (PER DOSE-12 HOURS INTERVAL)
  5. GENTAMICIN. [Concomitant]
     Active Substance: GENTAMICIN
     Indication: TACHYPNOEA
     Dosage: 4 MG/KG, UNK

REACTIONS (9)
  - Pulmonary hypertension [Recovered/Resolved]
  - Hypotension [None]
  - Bradycardia [None]
  - Atrial septal defect [None]
  - Patent ductus arteriosus [None]
  - Respiratory distress [None]
  - Tachypnoea [None]
  - Hypermagnesaemia [None]
  - Hypotonia [None]
